FAERS Safety Report 18864108 (Version 1)
Quarter: 2021Q1

REPORT INFORMATION
  Report Type: Spontaneous
  Country: GB (occurrence: GB)
  Receive Date: 20210209
  Receipt Date: 20210209
  Transmission Date: 20210420
  Serious: Yes (Other)
  Sender: FDA-Public Use
  Company Number: GB-SA-2021SA027831

PATIENT
  Age: 49 Year
  Sex: Female

DRUGS (6)
  1. PREDNISOLONE. [Suspect]
     Active Substance: PREDNISOLONE
     Dosage: 7.5 MG, QD
     Route: 065
  2. STELARA [Suspect]
     Active Substance: USTEKINUMAB
     Dosage: 90 MG, Q12W
     Route: 058
     Dates: start: 20160420
  3. PREDNISOLONE. [Suspect]
     Active Substance: PREDNISOLONE
     Dosage: 10 MG, QD
     Route: 065
  4. STELARA [Suspect]
     Active Substance: USTEKINUMAB
     Indication: PSORIATIC ARTHROPATHY
     Dosage: UNK UNK, Q12W
     Route: 058
     Dates: start: 201603
  5. PREDNISOLONE. [Suspect]
     Active Substance: PREDNISOLONE
     Indication: PRODUCT USED FOR UNKNOWN INDICATION
     Dosage: 5 MG, QD
     Route: 065
  6. LEFLUNOMIDE. [Suspect]
     Active Substance: LEFLUNOMIDE
     Indication: PRODUCT USED FOR UNKNOWN INDICATION
     Dosage: 20 MG, QD
     Route: 065

REACTIONS (5)
  - Arthritis [Unknown]
  - Oropharyngeal pain [Unknown]
  - Influenza [Unknown]
  - Hip fracture [Unknown]
  - Herpes zoster [Unknown]

NARRATIVE: CASE EVENT DATE: 201805
